FAERS Safety Report 7507484-0 (Version None)
Quarter: 2011Q2

REPORT INFORMATION
  Report Type: 
  Country: None (occurrence: None)
  Receive Date: 20110526
  Receipt Date: 20110331
  Transmission Date: 20111010
  Serious: No
  Sender: FDA-Public Use
  Company Number: US-MYLANLABS-2011S1006493

PATIENT
  Age: 54 Year
  Sex: Female

DRUGS (1)
  1. VALACYCLOVIR HYDROCHLORIDE [Suspect]
     Indication: HERPES VIRUS INFECTION
     Route: 048
     Dates: start: 20100101

REACTIONS (2)
  - DRUG INEFFECTIVE [None]
  - HERPES VIRUS INFECTION [None]
